FAERS Safety Report 7415543-6 (Version None)
Quarter: 2011Q2

REPORT INFORMATION
  Report Type: 
  Country: None (occurrence: None)
  Receive Date: 20110414
  Receipt Date: 20110405
  Transmission Date: 20111010
  Serious: Yes (Hospitalization)
  Sender: FDA-Public Use
  Company Number: JP-JNJFOC-20110401321

PATIENT
  Sex: Female

DRUGS (4)
  1. REMICADE [Suspect]
     Indication: CROHN'S DISEASE
     Dosage: TOTAL 11 INFUSIONS
     Route: 042
  2. PREDNISOLONE [Concomitant]
  3. REMICADE [Suspect]
     Route: 042
  4. MESALAMINE [Concomitant]

REACTIONS (9)
  - CANDIDA ENDOPHTHALMITIS [None]
  - DEVICE RELATED INFECTION [None]
  - ENDOCARDITIS [None]
  - PYELONEPHRITIS ACUTE [None]
  - PNEUMONIA ASPIRATION [None]
  - AORTIC VALVE INCOMPETENCE [None]
  - ANAPHYLACTIC SHOCK [None]
  - CLOSTRIDIUM DIFFICILE COLITIS [None]
  - INFUSION RELATED REACTION [None]
